FAERS Safety Report 6157693-0 (Version None)
Quarter: 2009Q2

REPORT INFORMATION
  Report Type: 
  Country: None (occurrence: None)
  Receive Date: 20090416
  Receipt Date: 20090409
  Transmission Date: 20091009
  Serious: Yes (Hospitalization)
  Sender: FDA-Public Use
  Company Number: US-ABBOTT-08P-163-0460864-00

PATIENT
  Sex: Female
  Weight: 69.008 kg

DRUGS (12)
  1. TRICOR [Suspect]
     Indication: BLOOD TRIGLYCERIDES INCREASED
     Route: 048
     Dates: start: 20070827, end: 20070907
  2. COUMADIN [Suspect]
     Indication: ANTICOAGULANT THERAPY
     Dosage: 3.5MG ONE DAY ALTERNATE WITH 4MG THE NEXT DAY
     Route: 048
     Dates: start: 19800101
  3. COUMADIN [Suspect]
     Indication: TRANSIENT ISCHAEMIC ATTACK
     Dates: start: 19800101
  4. LISINOPRIL [Concomitant]
     Indication: BLOOD PRESSURE
     Route: 048
     Dates: start: 20010101
  5. LIPITOR [Concomitant]
     Indication: BLOOD CHOLESTEROL
     Route: 048
     Dates: start: 20030101
  6. PREMARIN [Concomitant]
     Indication: HORMONE THERAPY
     Route: 048
  7. TOPAMAX [Concomitant]
     Indication: HEADACHE
     Dosage: 50-150MG
     Route: 048
     Dates: start: 20071101
  8. TOPAMAX [Concomitant]
     Dosage: 1-2 AT NIGHT
     Route: 048
  9. ZOMIG [Concomitant]
     Indication: MIGRAINE
     Route: 055
     Dates: start: 20071001
  10. LIBRAX [Concomitant]
     Indication: DRUG USE FOR UNKNOWN INDICATION
  11. NASONEX [Concomitant]
     Indication: NASAL CONGESTION
     Route: 055
  12. TYLENOL (CAPLET) [Concomitant]
     Indication: HEADACHE
     Dosage: 2 PILLS TWICE A DAY.
     Route: 048

REACTIONS (5)
  - APHASIA [None]
  - CEREBRAL HAEMORRHAGE [None]
  - HEADACHE [None]
  - SINUSITIS [None]
  - SUBDURAL HAEMATOMA [None]
